FAERS Safety Report 8578902-4 (Version None)
Quarter: 2012Q3

REPORT INFORMATION
  Report Type: 
  Country: None (occurrence: None)
  Receive Date: 20120808
  Receipt Date: 20120731
  Transmission Date: 20120928
  Serious: Yes (Other)
  Sender: FDA-Public Use
  Company Number: DK-JNJFOC-20120712812

PATIENT
  Sex: Male

DRUGS (12)
  1. POTASSIUM CHLORIDE [Concomitant]
     Indication: MINERAL SUPPLEMENTATION
     Route: 065
  2. PRADAXA [Interacting]
     Indication: ATRIAL FIBRILLATION
     Route: 048
     Dates: start: 20120713, end: 20120714
  3. FUROSEMIDE [Concomitant]
     Route: 065
  4. MICONAZOLE [Suspect]
     Indication: ORAL CANDIDIASIS
     Route: 065
     Dates: start: 20120703, end: 20120715
  5. CLOPIDOGREL [Suspect]
     Indication: THROMBOSIS PROPHYLAXIS
     Route: 065
     Dates: start: 20120604, end: 20120713
  6. IBUPROFEN [Suspect]
     Indication: PAIN
     Route: 065
     Dates: start: 20120711, end: 20120713
  7. MICONAZOLE [Suspect]
     Route: 065
  8. SIMVASTATIN [Concomitant]
     Indication: HYPERCHOLESTEROLAEMIA
     Route: 065
  9. METOPROLOL SUCCINATE [Concomitant]
     Route: 065
  10. PENOMAX [Concomitant]
     Indication: URINARY TRACT INFECTION
     Route: 065
  11. PINEX COMP [Concomitant]
     Route: 065
  12. ENACODAN [Concomitant]
     Indication: HYPERTENSION
     Route: 065

REACTIONS (2)
  - CONJUNCTIVAL HAEMORRHAGE [None]
  - DRUG INTERACTION [None]
